FAERS Safety Report 7866064-8 (Version None)
Quarter: 2011Q4

REPORT INFORMATION
  Report Type: 
  Country: None (occurrence: None)
  Receive Date: 20111028
  Receipt Date: 20110415
  Transmission Date: 20120403
  Serious: No
  Sender: FDA-Public Use
  Company Number: US-GLAXOSMITHKLINE-A0923203A

PATIENT
  Age: 71 Year
  Sex: Male

DRUGS (7)
  1. LIPITOR [Concomitant]
  2. HYDROCHLOROTHIAZIDE [Concomitant]
  3. FLUTICASONE PROPIONATE [Concomitant]
  4. ADVAIR DISKUS 100/50 [Suspect]
     Indication: CHRONIC OBSTRUCTIVE PULMONARY DISEASE
     Dosage: 1PUFF TWICE PER DAY
     Route: 055
     Dates: start: 20100401, end: 20110409
  5. LISINOPRIL [Concomitant]
  6. SPIRIVA [Concomitant]
  7. BYSTOLIC [Concomitant]

REACTIONS (5)
  - BURNING SENSATION [None]
  - GLOSSODYNIA [None]
  - ORAL NEOPLASM BENIGN [None]
  - ARTHRALGIA [None]
  - MYALGIA [None]
